FAERS Safety Report 19542358 (Version 1)
Quarter: 2021Q3

REPORT INFORMATION
  Report Type: Spontaneous
  Country: US (occurrence: US)
  Receive Date: 20210713
  Receipt Date: 20210713
  Transmission Date: 20211014
  Serious: Yes (Other)
  Sender: FDA-Public Use
  Company Number: US-ENDO PHARMACEUTICALS INC-2021-004101

PATIENT
  Age: 49 Year
  Sex: Male

DRUGS (8)
  1. RANITIDINE. [Suspect]
     Active Substance: RANITIDINE
     Indication: MIGRAINE
  2. RANITIDINE HYDROCHLORIDE. [Suspect]
     Active Substance: RANITIDINE HYDROCHLORIDE
     Indication: ABDOMINAL DISCOMFORT
     Dosage: 150 MG, DAILY
     Route: 065
     Dates: start: 200601, end: 201908
  3. RANITIDINE. [Suspect]
     Active Substance: RANITIDINE
     Indication: ABDOMINAL DISCOMFORT
     Dosage: 150 MG, DAILY
     Route: 065
     Dates: start: 200601, end: 201908
  4. ZANTAC [Suspect]
     Active Substance: RANITIDINE HYDROCHLORIDE
     Indication: MIGRAINE
     Dosage: 150 MG, DAILY
     Route: 065
     Dates: start: 199501, end: 200601
  5. ZANTAC [Suspect]
     Active Substance: RANITIDINE HYDROCHLORIDE
     Indication: ABDOMINAL DISCOMFORT
     Dosage: 75 MG, DAILY
     Route: 065
     Dates: start: 199501, end: 200601
  6. ZANTAC [Suspect]
     Active Substance: RANITIDINE HYDROCHLORIDE
     Indication: MIGRAINE
     Dosage: 150 MG, DAILY
     Route: 065
     Dates: start: 199501, end: 200601
  7. RANITIDINE HYDROCHLORIDE. [Suspect]
     Active Substance: RANITIDINE HYDROCHLORIDE
     Indication: MIGRAINE
  8. ZANTAC [Suspect]
     Active Substance: RANITIDINE HYDROCHLORIDE
     Indication: ABDOMINAL DISCOMFORT
     Dosage: 75 MG, DAILY
     Route: 065
     Dates: start: 199501, end: 200601

REACTIONS (3)
  - Basal cell carcinoma [Unknown]
  - Basal cell carcinoma [Unknown]
  - Bladder cancer [Unknown]

NARRATIVE: CASE EVENT DATE: 20070101
